FAERS Safety Report 11842783 (Version 2)
Quarter: 2015Q4

REPORT INFORMATION
  Report Type: Spontaneous
  Country: GB (occurrence: GB)
  Receive Date: 20151216
  Receipt Date: 20151217
  Transmission Date: 20160305
  Serious: Yes (Life-Threatening)
  Sender: FDA-Public Use
  Company Number: GB-ASTRAZENECA-2015SF23335

PATIENT
  Age: 55 Year
  Sex: Male

DRUGS (8)
  1. ASPIRIN. [Concomitant]
     Active Substance: ASPIRIN
  2. HEPARIN [Concomitant]
     Active Substance: HEPARIN SODIUM
  3. TICAGRELOR [Suspect]
     Active Substance: TICAGRELOR
     Route: 048
  4. TICAGRELOR [Suspect]
     Active Substance: TICAGRELOR
     Route: 048
  5. BISOPROLOL [Concomitant]
     Active Substance: BISOPROLOL
  6. SIMVASTATIN. [Concomitant]
     Active Substance: SIMVASTATIN
  7. TIROFIBAN [Concomitant]
     Active Substance: TIROFIBAN
  8. HEPARIN [Concomitant]
     Active Substance: HEPARIN SODIUM
     Dosage: LOW MOLECULAR WEIGHT

REACTIONS (2)
  - Pneumonitis [Recovered/Resolved]
  - Pulmonary haemorrhage [Recovered/Resolved]
